FAERS Safety Report 7367267-1 (Version None)
Quarter: 2011Q1

REPORT INFORMATION
  Report Type: 
  Country: None (occurrence: None)
  Receive Date: 20110322
  Receipt Date: 20110311
  Transmission Date: 20110831
  Serious: Yes (Hospitalization, Other)
  Sender: FDA-Public Use
  Company Number: US-PFIZER INC-2006031767

PATIENT
  Sex: Female

DRUGS (4)
  1. NEURONTIN [Suspect]
     Dosage: 300 MG, 3 TIMES DAILY FOR 3 DAYS
     Route: 048
  2. NEURONTIN [Suspect]
     Dosage: 300 MG, TWICE DAILY FOR 3 DAYS
     Route: 048
  3. NEURONTIN [Suspect]
     Dosage: 300 MG, BEDTIME FOR 3 NIGHTS
     Route: 048
  4. NEURONTIN [Suspect]
     Dosage: 300 MG, DOUBLE AT THE BEDTIME

REACTIONS (4)
  - SUICIDAL IDEATION [None]
  - PSYCHOTIC DISORDER [None]
  - BIPOLAR DISORDER [None]
  - DEPRESSION [None]
